FAERS Safety Report 4929510-5 (Version None)
Quarter: 2006Q1

REPORT INFORMATION
  Report Type: 
  Country: None (occurrence: None)
  Receive Date: 20060224
  Receipt Date: 20060208
  Transmission Date: 20060701
  Serious: Yes (Hospitalization)
  Sender: FDA-Public Use
  Company Number: 390001M06FRA

PATIENT
  Age: 34 Year
  Sex: Female

DRUGS (3)
  1. CETROTIDE [Suspect]
     Indication: IN VITRO FERTILISATION
     Dosage: 0.25 MG, ONCE, SUBCUTANEOUS
     Route: 058
     Dates: start: 20060111, end: 20060111
  2. CLOMIPHENE CITRATE (CLOMIFENE) [Concomitant]
  3. RECOMBINANT FSH (FOLLICLE STIMULATING HORMONE, RECOMBINANT) [Concomitant]

REACTIONS (6)
  - DIZZINESS [None]
  - HEADACHE [None]
  - HYPERSENSITIVITY [None]
  - LOSS OF CONSCIOUSNESS [None]
  - MALAISE [None]
  - PARAESTHESIA [None]
